FAERS Safety Report 6215587-6 (Version None)
Quarter: 2009Q2

REPORT INFORMATION
  Report Type: 
  Country: None (occurrence: None)
  Receive Date: 20090603
  Receipt Date: 20090603
  Transmission Date: 20091009
  Serious: Yes (Other)
  Sender: FDA-Public Use
  Company Number: None

PATIENT
  Sex: Female
  Weight: 92.5338 kg

DRUGS (4)
  1. TRILIPIX [Suspect]
     Indication: BLOOD CHOLESTEROL
     Dosage: 135 MG @ BEDTIME
     Dates: start: 20090228
  2. TRILIPIX [Suspect]
     Indication: BLOOD TRIGLYCERIDES
     Dosage: 135 MG @ BEDTIME
     Dates: start: 20090228
  3. TRILIPIX [Suspect]
     Indication: BLOOD CHOLESTEROL
     Dosage: 135 MG @ BEDTIME
     Dates: start: 20090529
  4. TRILIPIX [Suspect]
     Indication: BLOOD TRIGLYCERIDES
     Dosage: 135 MG @ BEDTIME
     Dates: start: 20090529

REACTIONS (13)
  - ABDOMINAL DISCOMFORT [None]
  - ALOPECIA [None]
  - BACK PAIN [None]
  - DIARRHOEA [None]
  - FATIGUE [None]
  - GENERALISED OEDEMA [None]
  - HEADACHE [None]
  - MUSCLE ENZYME INCREASED [None]
  - MYALGIA [None]
  - NAUSEA [None]
  - OROPHARYNGEAL PAIN [None]
  - VISION BLURRED [None]
  - VISUAL ACUITY REDUCED [None]
